FAERS Safety Report 26098583 (Version 1)
Quarter: 2025Q4

REPORT INFORMATION
  Report Type: Spontaneous
  Country: US (occurrence: US)
  Receive Date: 20251127
  Receipt Date: 20251127
  Transmission Date: 20260118
  Serious: Yes (Hospitalization, Other)
  Sender: ORIENT PHARMA
  Company Number: US-Orient Pharma-000428

PATIENT
  Age: 72 Year
  Sex: Male

DRUGS (6)
  1. VANCOMYCIN [Suspect]
     Active Substance: VANCOMYCIN
     Indication: Postoperative wound infection
     Dosage: ONE DOSE OF IV VANCOMYCIN, FOLLOWED BY THREE DAYS OF ORAL VANCOMYCIN
     Route: 048
  2. CEFEPIME [Concomitant]
     Active Substance: CEFEPIME HYDROCHLORIDE
     Indication: Postoperative wound infection
  3. HEPARIN [Concomitant]
     Active Substance: HEPARIN SODIUM
  4. APIXABAN [Concomitant]
     Active Substance: APIXABAN
  5. CEFTRIAXONE [Concomitant]
     Active Substance: CEFTRIAXONE
  6. METRONIDAZOLE [Concomitant]
     Active Substance: METRONIDAZOLE

REACTIONS (1)
  - Immune thrombocytopenia [Recovered/Resolved]
